FAERS Safety Report 8954357 (Version 1)
Quarter: 2012Q4

REPORT INFORMATION
  Report Type: 
  Country: PE (occurrence: PE)
  Receive Date: 20121207
  Receipt Date: 20121207
  Transmission Date: 20130627
  Serious: Yes (Hospitalization)
  Sender: FDA-Public Use
  Company Number: PE-B.I. PHARMACEUTICALS,INC./RIDGEFIELD-2012-RA-00359RA

PATIENT
  Age: 73 Year
  Sex: Female

DRUGS (4)
  1. PRADAXA [Suspect]
     Indication: THROMBOSIS PROPHYLAXIS
     Dosage: 300 mg
     Route: 048
     Dates: start: 201210, end: 201211
  2. OMEPRAZOLE [Concomitant]
     Indication: PROPHYLAXIS AGAINST GASTROINTESTINAL ULCER
     Dosage: 20 mg
     Route: 048
     Dates: start: 201210
  3. ALPRAZOLAM [Concomitant]
     Indication: ANXIETY
     Dosage: 0.5 mg
     Route: 048
     Dates: start: 201210
  4. AMLODIPINE [Concomitant]
     Indication: HYPERTENSION
     Dosage: 2.5 mg
     Route: 048
     Dates: start: 2010

REACTIONS (2)
  - Deep vein thrombosis [Not Recovered/Not Resolved]
  - Drug ineffective [Not Recovered/Not Resolved]
